FAERS Safety Report 17652044 (Version 1)
Quarter: 2020Q2

REPORT INFORMATION
  Report Type: Spontaneous
  Country: CA (occurrence: CA)
  Receive Date: 20200409
  Receipt Date: 20200409
  Transmission Date: 20200713
  Serious: Yes (Death)
  Sender: FDA-Public Use
  Company Number: CA-TEVA-2020-CA-1219710

PATIENT
  Age: 38 Year
  Sex: Female
  Weight: 75 kg

DRUGS (11)
  1. DIHYDROERGOTAMINE MESILATE [Concomitant]
     Active Substance: DIHYDROERGOTAMINE MESYLATE
  2. ONDANSETRON [Concomitant]
     Active Substance: ONDANSETRON
  3. LORAZEPAM. [Concomitant]
     Active Substance: LORAZEPAM
  4. ZYBAN [Concomitant]
     Active Substance: BUPROPION HYDROCHLORIDE
  5. PANTOPRAZOLE [Concomitant]
     Active Substance: PANTOPRAZOLE
  6. OXYNEO [Suspect]
     Active Substance: OXYCODONE
     Indication: PRODUCT USED FOR UNKNOWN INDICATION
     Route: 048
  7. CLONIDINE. [Concomitant]
     Active Substance: CLONIDINE
  8. CITALOPRAM [Suspect]
     Active Substance: CITALOPRAM HYDROBROMIDE
     Indication: PRODUCT USED FOR UNKNOWN INDICATION
     Route: 048
  9. GABAPENTIN. [Suspect]
     Active Substance: GABAPENTIN
     Indication: PRODUCT USED FOR UNKNOWN INDICATION
     Route: 065
  10. ACETAMINOPHEN/OXYCODONE HYDROCHLORIDE [Suspect]
     Active Substance: ACETAMINOPHEN\OXYCODONE HYDROCHLORIDE
     Indication: PRODUCT USED FOR UNKNOWN INDICATION
     Route: 065
  11. METONIA [Concomitant]
     Active Substance: METOCLOPRAMIDE

REACTIONS (1)
  - Toxicity to various agents [Fatal]
